FAERS Safety Report 8912767 (Version 1)
Quarter: 2012Q4

REPORT INFORMATION
  Report Type: Report from Study
  Country: US (occurrence: US)
  Receive Date: 20121116
  Receipt Date: 20121116
  Transmission Date: 20130627
  Serious: Yes (Hospitalization)
  Sender: FDA-Public Use
  Company Number: US-ABBOTT-12P-163-1006655-00

PATIENT
  Age: 57 Year
  Sex: Female

DRUGS (3)
  1. HUMIRA [Suspect]
     Indication: RHEUMATOID ARTHRITIS
  2. HUMIRA [Suspect]
  3. STATINS [Suspect]

REACTIONS (7)
  - Cerebrovascular accident [Recovering/Resolving]
  - Injection site pain [Unknown]
  - Dizziness [Unknown]
  - Vertigo [Unknown]
  - Pain [Unknown]
  - Mobility decreased [Unknown]
  - Drug dose omission [Unknown]
